FAERS Safety Report 11966649 (Version 1)
Quarter: 2016Q1

REPORT INFORMATION
  Report Type: Spontaneous
  Country: FR (occurrence: FR)
  Receive Date: 20160127
  Receipt Date: 20160127
  Transmission Date: 20160526
  Serious: Yes (Other)
  Sender: FDA-Public Use
  Company Number: FR-JNJFOC-20160115419

PATIENT

DRUGS (2)
  1. INFLIXIMAB, RECOMBINANT [Suspect]
     Active Substance: INFLIXIMAB
     Indication: COLITIS ULCERATIVE
     Route: 042
     Dates: start: 201305, end: 201404
  2. INFLIXIMAB, RECOMBINANT [Suspect]
     Active Substance: INFLIXIMAB
     Indication: CROHN^S DISEASE
     Route: 042
     Dates: start: 201305, end: 201404

REACTIONS (6)
  - Paradoxical drug reaction [Unknown]
  - Hypersensitivity [Unknown]
  - Lupus-like syndrome [Unknown]
  - Psoriasis [Unknown]
  - Arthritis [Unknown]
  - Spondyloarthropathy [Unknown]
